FAERS Safety Report 7580734-0 (Version None)
Quarter: 2011Q2

REPORT INFORMATION
  Report Type: 
  Country: None (occurrence: None)
  Receive Date: 20110629
  Receipt Date: 20110620
  Transmission Date: 20111010
  Serious: Yes (Hospitalization, Other)
  Sender: FDA-Public Use
  Company Number: US-ASTRAZENECA-2011SE37445

PATIENT
  Sex: Female

DRUGS (1)
  1. NEXIUM [Suspect]
     Route: 048

REACTIONS (12)
  - DYSPEPSIA [None]
  - GAIT DISTURBANCE [None]
  - ANKLE FRACTURE [None]
  - PAIN IN EXTREMITY [None]
  - GASTRIC ULCER [None]
  - WEIGHT DECREASED [None]
  - BARRETT'S OESOPHAGUS [None]
  - TRAUMATIC ARTHRITIS [None]
  - SPINAL FRACTURE [None]
  - ARTHRALGIA [None]
  - TIBIA FRACTURE [None]
  - PATELLA FRACTURE [None]
